FAERS Safety Report 19139988 (Version 1)
Quarter: 2021Q2

REPORT INFORMATION
  Report Type: Spontaneous
  Country: FR (occurrence: FR)
  Receive Date: 20210415
  Receipt Date: 20210415
  Transmission Date: 20210717
  Serious: Yes (Other)
  Sender: FDA-Public Use
  Company Number: FR-ROCHE-2801957

PATIENT
  Age: 32 Year
  Sex: Female
  Weight: 82 kg

DRUGS (7)
  1. LOXAPAC [Concomitant]
     Active Substance: LOXAPINE
     Dosage: 15 MG LE MATIN ET 25 MG LE SOIR
     Route: 048
  2. RIVOTRIL [Suspect]
     Active Substance: CLONAZEPAM
     Indication: EPILEPSY
     Dosage: 2.5 MG/ML ORAL SOLUTION IN DROP
     Route: 048
     Dates: start: 20210130, end: 20210130
  3. DUPHALAC [Concomitant]
     Active Substance: LACTULOSE
     Route: 048
  4. LEVOTHYROXINE. [Concomitant]
     Active Substance: LEVOTHYROXINE
     Route: 048
  5. DEPAMIDE [Concomitant]
     Active Substance: VALPROMIDE
     Dosage: 300 MG GASTRO?RESISTANT FILM?COATED TABLET
     Route: 048
  6. FUNGIZONE [Concomitant]
     Active Substance: AMPHOTERICIN B
     Route: 048
  7. CITALOPRAM [Concomitant]
     Active Substance: CITALOPRAM HYDROBROMIDE

REACTIONS (3)
  - Product prescribing error [Unknown]
  - Hypoxia [Recovered/Resolved]
  - Somnolence [Recovered/Resolved]

NARRATIVE: CASE EVENT DATE: 20210130
